FAERS Safety Report 22321058 (Version 3)
Quarter: 2023Q2

REPORT INFORMATION
  Report Type: Report from Study
  Country: EG (occurrence: EG)
  Receive Date: 20230515
  Receipt Date: 20230626
  Transmission Date: 20230722
  Serious: Yes (Other)
  Sender: FDA-Public Use
  Company Number: EG-002147023-NVSC2023EG110458

PATIENT
  Age: 20 Year
  Sex: Female

DRUGS (14)
  1. COSENTYX [Suspect]
     Active Substance: SECUKINUMAB
     Indication: Psoriasis
     Dosage: 300 MG, QD (2 PENS ONCE PER DAY FOR 2 DAYS)
     Route: 058
     Dates: start: 20230501
  2. COSENTYX [Suspect]
     Active Substance: SECUKINUMAB
     Indication: Subcutaneous abscess
     Dosage: 150 MG, QW, (ONE PEN PER WEEK, FOR 2 CONSECUTIVE DAYS)
     Route: 065
  3. COSENTYX [Suspect]
     Active Substance: SECUKINUMAB
     Dosage: 150 MG (TOTAL 11 PENS)
     Route: 058
  4. OSPEN [Concomitant]
     Indication: Antibiotic therapy
     Dosage: UNK, QD, STARTED 4 YEARS AGO
     Route: 065
  5. MOBIC [Concomitant]
     Active Substance: MELOXICAM
     Indication: Back pain
     Dosage: 2 DOSAGE FORM, (30 MG 2 TABS UPON NEEDED), STARTED ONE AND HALF YEARS AGO, (ON AND OFF)
     Route: 065
  6. LYRICA [Concomitant]
     Active Substance: PREGABALIN
     Indication: Back pain
     Dosage: UNK, 1 TO 2 TABLETS PER DAY, STARTED SINCE HER DISEASED STARTED
     Route: 065
  7. MYOFEN [Concomitant]
     Indication: Inflammation
     Dosage: UNK, 2 TO 3 TIMES PER DAY, STARTED 3 YEARS AGO ONGOING
     Route: 065
  8. MYOFEN [Concomitant]
     Indication: Back pain
  9. VIBRAMYCIN [Concomitant]
     Active Substance: DOXYCYCLINE
     Indication: Antibiotic therapy
     Dosage: UNK, BID, STARTED 4 YEARS AGO
     Route: 065
  10. UNSPECIFIED INGREDIENT [Concomitant]
     Active Substance: UNSPECIFIED INGREDIENT
     Indication: Eye disorder
     Dosage: UNK
     Route: 065
  11. REMICADE [Concomitant]
     Active Substance: INFLIXIMAB
     Indication: Rheumatoid arthritis
     Dosage: UNK
     Route: 065
  12. ACTEMRA [Concomitant]
     Active Substance: TOCILIZUMAB
     Indication: Rheumatoid arthritis
     Dosage: UNK
     Route: 065
  13. CIMZIA [Concomitant]
     Active Substance: CERTOLIZUMAB PEGOL
     Indication: Rheumatoid arthritis
     Dosage: UNK
     Route: 065
  14. HUMIRA [Concomitant]
     Active Substance: ADALIMUMAB
     Indication: Rheumatoid arthritis
     Dosage: UNK
     Route: 065

REACTIONS (5)
  - Chest wall abscess [Not Recovered/Not Resolved]
  - Hidradenitis [Unknown]
  - Off label use [Not Recovered/Not Resolved]
  - Drug ineffective [Not Recovered/Not Resolved]
  - Product use in unapproved indication [Not Recovered/Not Resolved]

NARRATIVE: CASE EVENT DATE: 20230501
